FAERS Safety Report 25632733 (Version 1)
Quarter: 2025Q3

REPORT INFORMATION
  Report Type: Spontaneous
  Country: US (occurrence: US)
  Receive Date: 20250801
  Receipt Date: 20250801
  Transmission Date: 20251021
  Serious: No
  Sender: GRIFOLS
  Company Number: US-IGSA-BIG0032314

PATIENT
  Sex: Male

DRUGS (8)
  1. GAMUNEX-C [Suspect]
     Active Substance: HUMAN IMMUNOGLOBULIN G
     Indication: Immunodeficiency common variable
     Dosage: 12.5 GRAM, Q.2WK.
     Route: 058
  2. ZITHROMAX [Concomitant]
     Active Substance: AZITHROMYCIN DIHYDRATE
  3. CEFDINIR [Concomitant]
     Active Substance: CEFDINIR
  4. DOXYCYCLINE [Concomitant]
     Active Substance: DOXYCYCLINE
  5. FLUZONE HIGH-DOSE NOS [Concomitant]
     Active Substance: INFLUENZA VIRUS VACCINE
     Dates: start: 2016, end: 2016
  6. LEVOTHYROXINE SODIUM [Concomitant]
     Active Substance: LEVOTHYROXINE SODIUM
  7. MELOXICAM [Concomitant]
     Active Substance: MELOXICAM
  8. OLMESARTAN MEDOXOMIL/HYDROCHLOORTHIAZIDE KRKA [Concomitant]

REACTIONS (2)
  - Intentional dose omission [Unknown]
  - Illness [Unknown]
